FAERS Safety Report 7251641-8 (Version None)
Quarter: 2011Q1

REPORT INFORMATION
  Report Type: 
  Country: None (occurrence: None)
  Receive Date: 20110128
  Receipt Date: 20110120
  Transmission Date: 20110831
  Serious: Yes (Other)
  Sender: FDA-Public Use
  Company Number: JP-AMGEN-JPNCT2011005312

PATIENT
  Age: 56 Year
  Sex: Male
  Weight: 58 kg

DRUGS (14)
  1. ROHYPNOL [Concomitant]
     Route: 048
  2. HICEE GRANULES 25% [Concomitant]
     Route: 048
  3. MAGNESIUM OXIDE [Concomitant]
     Route: 048
  4. PANITUMUMAB [Suspect]
     Indication: COLORECTAL CANCER
     Dosage: 6 MG/KG, Q2WK
     Route: 041
     Dates: start: 20101110, end: 20101208
  5. 5-FU [Suspect]
     Indication: COLORECTAL CANCER
     Route: 040
     Dates: start: 20101110, end: 20101208
  6. FERROUS CITRATE [Concomitant]
     Route: 048
  7. CORTICOSTEROIDS [Concomitant]
     Indication: PROPHYLAXIS
     Route: 065
  8. TSUMURA GOSHAJINKIGAN [Concomitant]
     Route: 048
  9. ELPLAT [Suspect]
     Indication: COLORECTAL CANCER
     Route: 041
     Dates: start: 20101110, end: 20101208
  10. NIVADIL [Concomitant]
     Route: 048
  11. 5-FU [Suspect]
     Route: 041
     Dates: start: 20101110, end: 20101208
  12. CALCIUM LEVOFOLINATE [Concomitant]
     Indication: COLORECTAL CANCER
     Route: 041
     Dates: start: 20101110, end: 20101208
  13. ANTIHISTAMINES [Concomitant]
     Indication: PROPHYLAXIS
     Route: 065
  14. TAKEPRON OD TABLETS 15 [Concomitant]
     Route: 048

REACTIONS (2)
  - NEUTROPHIL COUNT DECREASED [None]
  - DERMATITIS ACNEIFORM [None]
